FAERS Safety Report 21922856 (Version 2)
Quarter: 2023Q1

REPORT INFORMATION
  Report Type: Report from Study
  Country: US (occurrence: US)
  Receive Date: 20230128
  Receipt Date: 20230310
  Transmission Date: 20230418
  Serious: Yes (Other)
  Sender: FDA-Public Use
  Company Number: US-002147023-NVSC2023US018202

PATIENT
  Sex: Female

DRUGS (3)
  1. TREPROSTINIL [Suspect]
     Active Substance: TREPROSTINIL
     Indication: Pulmonary hypertension
     Dosage: 20.2 NG/KG/MIN, CONT
     Route: 058
     Dates: start: 20220411
  2. TREPROSTINIL [Suspect]
     Active Substance: TREPROSTINIL
     Dosage: 23.7 NG/KG/ MIN, CONT
     Route: 058
     Dates: start: 202211
  3. TADALAFIL [Concomitant]
     Active Substance: TADALAFIL
     Indication: Product used for unknown indication
     Dosage: UNK
     Route: 065

REACTIONS (6)
  - Cellulitis [Unknown]
  - Nausea [Recovered/Resolved]
  - Vomiting [Recovered/Resolved]
  - Diarrhoea [Recovered/Resolved]
  - Injection site pain [Unknown]
  - Wrong technique in device usage process [Unknown]
